FAERS Safety Report 8359724-6 (Version None)
Quarter: 2012Q2

REPORT INFORMATION
  Report Type: 
  Country: None (occurrence: None)
  Receive Date: 20120515
  Receipt Date: 20120510
  Transmission Date: 20120825
  Serious: Yes (Death, Hospitalization)
  Sender: FDA-Public Use
  Company Number: JP-JNJFOC-20110613227

PATIENT
  Age: 55 Year
  Sex: Female
  Weight: 49 kg

DRUGS (78)
  1. DOXORUBICIN HCL [Suspect]
     Route: 042
     Dates: start: 20090930, end: 20090930
  2. JUVELA [Concomitant]
     Indication: PROPHYLAXIS
     Route: 048
     Dates: start: 20090623
  3. PYDOXAL [Concomitant]
     Route: 048
     Dates: start: 20090819, end: 20090825
  4. DECADRON [Concomitant]
     Route: 048
     Dates: start: 20090721, end: 20090721
  5. DECADRON [Concomitant]
     Route: 048
     Dates: start: 20090723, end: 20090726
  6. DECADRON [Concomitant]
     Route: 048
     Dates: start: 20090727, end: 20090727
  7. DECADRON [Concomitant]
     Route: 048
     Dates: start: 20091028, end: 20091028
  8. DECADRON [Concomitant]
     Route: 042
     Dates: start: 20090722, end: 20090722
  9. HEPARIN [Concomitant]
     Indication: PALMAR-PLANTAR ERYTHRODYSAESTHESIA SYNDROME
     Route: 061
     Dates: start: 20090703
  10. GRANISETRON [Concomitant]
     Route: 041
     Dates: start: 20090930, end: 20090930
  11. XYLOCAINE [Concomitant]
     Indication: STOMATITIS
     Route: 049
     Dates: start: 20090623
  12. DECADRON [Concomitant]
     Route: 048
     Dates: start: 20090722, end: 20090722
  13. DECADRON [Concomitant]
     Route: 048
     Dates: start: 20090825, end: 20090825
  14. DECADRON [Concomitant]
     Route: 048
     Dates: start: 20090826, end: 20090826
  15. CELESTAMINE TAB [Concomitant]
     Route: 048
     Dates: start: 20090909, end: 20090915
  16. CEFAZOLIN SODIUM [Concomitant]
     Indication: PYREXIA
     Route: 041
     Dates: start: 20090909, end: 20090914
  17. GRANISETRON [Concomitant]
     Route: 041
     Dates: start: 20091028, end: 20091028
  18. LORFENAMIN [Concomitant]
     Indication: BACK PAIN
     Route: 048
  19. ZOLPIDEM [Concomitant]
     Indication: INSOMNIA
     Dosage: P.R.N
     Route: 048
     Dates: end: 20090928
  20. PYDOXAL [Concomitant]
     Indication: PROPHYLAXIS
     Route: 048
     Dates: start: 20090630, end: 20090721
  21. PYDOXAL [Concomitant]
     Route: 048
     Dates: start: 20090623, end: 20090629
  22. PYDOXAL [Concomitant]
     Route: 048
     Dates: start: 20090722, end: 20090728
  23. PYDOXAL [Concomitant]
     Route: 048
     Dates: start: 20090729, end: 20090818
  24. DECADRON [Concomitant]
     Route: 048
     Dates: start: 20091005, end: 20091005
  25. DECADRON [Concomitant]
     Route: 048
     Dates: start: 20091006, end: 20091006
  26. SODIUM BICARBONATE [Concomitant]
     Indication: PROPHYLAXIS
     Route: 048
     Dates: start: 20090623
  27. CEFACLOR [Concomitant]
     Indication: PALMAR-PLANTAR ERYTHRODYSAESTHESIA SYNDROME
     Route: 048
     Dates: start: 20090915, end: 20090920
  28. FERRIC PYROPHOSPHATE [Concomitant]
     Indication: PROPHYLAXIS
     Route: 048
     Dates: start: 20091030
  29. DECADRON [Concomitant]
     Indication: PROPHYLAXIS
     Route: 048
     Dates: start: 20090623, end: 20090623
  30. DECADRON [Concomitant]
     Route: 048
     Dates: start: 20090929, end: 20090929
  31. DECADRON [Concomitant]
     Route: 048
     Dates: start: 20091027, end: 20091027
  32. DECADRON [Concomitant]
     Route: 048
     Dates: start: 20091029, end: 20091101
  33. DECADRON [Concomitant]
     Route: 042
     Dates: start: 20090930, end: 20090930
  34. GRANISETRON [Concomitant]
     Indication: PROPHYLAXIS
     Route: 042
     Dates: start: 20090722, end: 20090722
  35. GRANISETRON [Concomitant]
     Route: 042
     Dates: start: 20090624, end: 20090624
  36. TPN [Concomitant]
     Indication: STOMATITIS
     Route: 048
     Dates: start: 20090728
  37. DEQUALINIUM CHLORIDE [Concomitant]
     Indication: STOMATITIS
     Route: 048
     Dates: start: 20090729
  38. IDOMETHINE [Concomitant]
     Indication: BACK PAIN
     Route: 061
     Dates: start: 20091031
  39. RINDERON-VG [Concomitant]
     Indication: PALMAR-PLANTAR ERYTHRODYSAESTHESIA SYNDROME
     Route: 061
     Dates: start: 20090820
  40. HYDROCORTISONE BUTYRATE PROPIONATE [Concomitant]
     Indication: DRUG ERUPTION
     Route: 061
     Dates: start: 20090909, end: 20091029
  41. HYDROCORTISONE BUTYRATE PROPIONATE [Concomitant]
     Indication: PALMAR-PLANTAR ERYTHRODYSAESTHESIA SYNDROME
     Route: 061
     Dates: start: 20090909, end: 20091029
  42. DOXORUBICIN HCL [Suspect]
     Route: 042
     Dates: start: 20090819, end: 20090819
  43. PYDOXAL [Concomitant]
     Route: 048
     Dates: start: 20091007, end: 20091027
  44. DECADRON [Concomitant]
     Route: 048
     Dates: start: 20090728, end: 20090728
  45. DECADRON [Concomitant]
     Route: 048
     Dates: start: 20091102, end: 20091102
  46. DECADRON [Concomitant]
     Route: 048
     Dates: start: 20091103, end: 20091103
  47. SODIUM ALGINATE [Concomitant]
     Route: 048
     Dates: start: 20090729, end: 20090816
  48. CELESTAMINE TAB [Concomitant]
     Indication: PALMAR-PLANTAR ERYTHRODYSAESTHESIA SYNDROME
     Route: 048
     Dates: start: 20090909, end: 20090915
  49. DOXORUBICIN HCL [Suspect]
     Route: 042
     Dates: start: 20090722, end: 20090722
  50. KETOPROFEN [Concomitant]
     Indication: BACK PAIN
     Route: 062
     Dates: start: 20090623, end: 20090929
  51. PYDOXAL [Concomitant]
     Route: 048
     Dates: start: 20090826, end: 20090929
  52. DECADRON [Concomitant]
     Route: 048
     Dates: start: 20090629, end: 20090629
  53. DECADRON [Concomitant]
     Route: 048
     Dates: start: 20090630, end: 20090630
  54. DECADRON [Concomitant]
     Route: 048
     Dates: start: 20090930, end: 20090930
  55. DECADRON [Concomitant]
     Route: 048
     Dates: start: 20091001, end: 20091004
  56. CINAL [Concomitant]
     Indication: PROPHYLAXIS
     Route: 048
     Dates: start: 20090701
  57. VITAMEDIN [Concomitant]
     Indication: PROPHYLAXIS
     Route: 048
     Dates: start: 20090701
  58. ROHYPNOL [Concomitant]
     Indication: INSOMNIA
     Route: 048
     Dates: start: 20090929
  59. DOXORUBICIN HCL [Suspect]
     Indication: OVARIAN CANCER RECURRENT
     Route: 042
     Dates: start: 20090624, end: 20090624
  60. DOXORUBICIN HCL [Suspect]
     Route: 042
     Dates: start: 20091028, end: 20091028
  61. PYDOXAL [Concomitant]
     Route: 048
     Dates: start: 20090930, end: 20091006
  62. DECADRON [Concomitant]
     Route: 048
     Dates: start: 20090624, end: 20090624
  63. DECADRON [Concomitant]
     Route: 048
     Dates: start: 20090818, end: 20090818
  64. DECADRON [Concomitant]
     Route: 048
     Dates: start: 20090819, end: 20090819
  65. DECADRON [Concomitant]
     Route: 048
     Dates: start: 20090820, end: 20090824
  66. DECADRON [Concomitant]
     Route: 042
     Dates: start: 20090819, end: 20090819
  67. FAMOTIDINE [Concomitant]
     Indication: PROPHYLAXIS
     Route: 048
     Dates: start: 20090701, end: 20090714
  68. CELESTAMINE TAB [Concomitant]
     Route: 048
     Dates: start: 20090916, end: 20090930
  69. GRANISETRON [Concomitant]
     Route: 041
     Dates: start: 20090819, end: 20090819
  70. XYLOCAINE [Concomitant]
     Indication: PROPHYLAXIS
     Route: 049
     Dates: start: 20090623
  71. PYDOXAL [Concomitant]
     Route: 048
     Dates: start: 20091028
  72. DECADRON [Concomitant]
     Route: 048
     Dates: start: 20090625, end: 20090628
  73. DECADRON [Concomitant]
     Route: 042
     Dates: start: 20090624, end: 20090624
  74. DECADRON [Concomitant]
     Route: 042
     Dates: start: 20091028, end: 20091028
  75. HEPARIN [Concomitant]
     Indication: PROPHYLAXIS
     Route: 061
     Dates: start: 20090703
  76. SODIUM ALGINATE [Concomitant]
     Indication: PROPHYLAXIS
     Route: 048
     Dates: start: 20090817
  77. TOUCHRON [Concomitant]
     Indication: BACK PAIN
     Route: 062
     Dates: start: 20090930
  78. CELESTAMINE TAB [Concomitant]
     Indication: DRUG ERUPTION
     Route: 048
     Dates: start: 20090916, end: 20090930

REACTIONS (4)
  - OVARIAN CANCER RECURRENT [None]
  - PYREXIA [None]
  - DERMATITIS [None]
  - PALMAR-PLANTAR ERYTHRODYSAESTHESIA SYNDROME [None]
